FAERS Safety Report 22057054 (Version 1)
Quarter: 2023Q1

REPORT INFORMATION
  Report Type: Spontaneous
  Country: US (occurrence: US)
  Receive Date: 20230303
  Receipt Date: 20230303
  Transmission Date: 20230418
  Serious: Yes (Hospitalization, Other)
  Sender: FDA-Public Use
  Company Number: US-ALKEM LABORATORIES LIMITED-US-ALKEM-2023-00210

PATIENT
  Age: 58 Year
  Sex: Male

DRUGS (5)
  1. TACROLIMUS [Interacting]
     Active Substance: TACROLIMUS
     Indication: Immunosuppressant drug therapy
     Dosage: UNK
     Route: 065
  2. TACROLIMUS [Interacting]
     Active Substance: TACROLIMUS
     Dosage: UNK
     Route: 065
  3. THYMOCYTE IMMUNE GLOBULIN NOS [Suspect]
     Active Substance: THYMOCYTE IMMUNE GLOBULIN NOS
     Indication: Kidney transplant rejection
     Dosage: UNK
     Route: 065
  4. VORICONAZOLE [Interacting]
     Active Substance: VORICONAZOLE
     Indication: Pneumonia pseudomonal
     Dosage: UNK
     Route: 065
  5. VORICONAZOLE [Interacting]
     Active Substance: VORICONAZOLE
     Indication: Pulmonary nocardiosis

REACTIONS (10)
  - Pneumonia pseudomonal [Unknown]
  - Pulmonary nocardiosis [Unknown]
  - Acute kidney injury [Recovered/Resolved]
  - Hyperkalaemia [Unknown]
  - Toxicity to various agents [Recovering/Resolving]
  - Aspartate aminotransferase increased [Unknown]
  - Drug interaction [Unknown]
  - Liver injury [Unknown]
  - Dyspnoea [Unknown]
  - Pyrexia [Unknown]
